FAERS Safety Report 17097530 (Version 6)
Quarter: 2019Q4

REPORT INFORMATION
  Report Type: Report from Study
  Country: PL (occurrence: PL)
  Receive Date: 20191202
  Receipt Date: 20191227
  Transmission Date: 20200122
  Serious: Yes (Hospitalization)
  Sender: FDA-Public Use
  Company Number: PL-EISAI MEDICAL RESEARCH-EC-2019-066170

PATIENT
  Age: 62 Year
  Sex: Male
  Weight: 60 kg

DRUGS (17)
  1. THEOSPIREX [Concomitant]
     Active Substance: THEOPHYLLINE ANHYDROUS
     Dates: start: 201701, end: 20191117
  2. OLFEN UNO [Concomitant]
     Active Substance: DICLOFENAC SODIUM
     Dates: start: 201801
  3. KETONAL [Concomitant]
     Dates: start: 20190719
  4. DEXAMETHASONE. [Concomitant]
     Active Substance: DEXAMETHASONE
     Dates: start: 20191103, end: 20191105
  5. DEXAMETHASONE. [Concomitant]
     Active Substance: DEXAMETHASONE
     Dates: start: 20191106, end: 20191108
  6. PULMOTEROL [Concomitant]
     Dates: start: 201701, end: 20191117
  7. PRENOME [Concomitant]
     Active Substance: OMEPRAZOLE
     Dates: start: 20190719
  8. SPIRIVA [Concomitant]
     Active Substance: TIOTROPIUM BROMIDE MONOHYDRATE
     Dates: start: 201801, end: 20191117
  9. ASPULMO [Concomitant]
     Dates: start: 201801, end: 20191117
  10. LOPERAMID [Concomitant]
     Active Substance: LOPERAMIDE
     Dates: start: 20190919
  11. CUTIVATE [Concomitant]
     Active Substance: FLUTICASONE PROPIONATE
     Dates: start: 20191021
  12. ENOXAPARIN SODIUM. [Concomitant]
     Active Substance: ENOXAPARIN SODIUM
     Dates: start: 20170703
  13. PEMBROLIZUMAB. [Suspect]
     Active Substance: PEMBROLIZUMAB
     Indication: NON-SMALL CELL LUNG CANCER METASTATIC
     Route: 041
     Dates: start: 20190717, end: 20191010
  14. PEMBROLIZUMAB. [Suspect]
     Active Substance: PEMBROLIZUMAB
     Route: 041
     Dates: start: 20191031, end: 20191031
  15. LENVATINIB [Suspect]
     Active Substance: LENVATINIB
     Indication: NON-SMALL CELL LUNG CANCER METASTATIC
     Route: 048
     Dates: start: 20190717
  16. ENAP-H [Concomitant]
     Dates: start: 201701, end: 20191117
  17. BISOCARD [Concomitant]
     Active Substance: BISOPROLOL
     Dates: start: 201701, end: 20191117

REACTIONS (1)
  - Pneumonia [Recovering/Resolving]

NARRATIVE: CASE EVENT DATE: 20191118
